FAERS Safety Report 8199595 (Version 4)
Quarter: 2012Q4

REPORT INFORMATION
  Report Type: Report from Study
  Country: JP (occurrence: JP)
  Receive Date: 20111025
  Receipt Date: 20121211
  Transmission Date: 20130627
  Serious: Yes (Death, Hospitalization)
  Sender: FDA-Public Use
  Company Number: PHHO2011JP14915

PATIENT
  Age: 60 Year
  Sex: Male
  Weight: 66 kg

DRUGS (18)
  1. ALISKIREN [Suspect]
     Indication: CARDIAC FAILURE
     Dosage: UNK
     Route: 048
     Dates: start: 20110316
  2. ALISKIREN [Suspect]
     Dosage: UNK
  3. COMPARATOR ENALAPRIL [Suspect]
     Indication: CARDIAC FAILURE
     Dosage: 10 mg, BID
     Route: 046
     Dates: start: 20110105
  4. COMPARATOR ENALAPRIL [Suspect]
     Dosage: 20 mg, BID
     Route: 048
     Dates: start: 20110201
  5. RENIVACE [Concomitant]
     Indication: CARDIAC FAILURE CHRONIC
     Dosage: 10 UNK, UNK
     Route: 048
     Dates: start: 20110105
  6. ALDACTONE [Concomitant]
     Indication: CARDIAC FAILURE CHRONIC
     Dosage: 25 mg, UNK
     Route: 048
     Dates: start: 20050414
  7. LASIX [Concomitant]
     Indication: CARDIAC FAILURE CHRONIC
     Dosage: 40 mg, UNK
     Route: 048
     Dates: start: 20050709
  8. FLUITRAN [Concomitant]
     Indication: CARDIAC FAILURE CHRONIC
     Dosage: 1 mg, daily
     Route: 048
     Dates: start: 20050812
  9. ARTIST [Concomitant]
     Indication: CARDIAC FAILURE CHRONIC
     Dosage: 4 mg, daily
     Route: 048
     Dates: start: 20051004
  10. BAYASPIRIN [Concomitant]
     Indication: MYOCARDIAL INFARCTION
     Dosage: 100 mg, UNK
     Route: 048
     Dates: start: 20050411
  11. WARFARIN [Concomitant]
     Indication: THROMBOSIS PROPHYLAXIS
     Dosage: 3 mg, UNK
     Route: 048
     Dates: start: 20090811, end: 20111005
  12. WARFARIN [Concomitant]
     Dosage: 2 mg
     Dates: start: 20111006
  13. NOVOLIN 30R [Concomitant]
     Indication: DIABETES MELLITUS
     Dosage: 12 IU in morning, 10 IU
     Route: 058
     Dates: start: 20050324
  14. MUCOSTA [Concomitant]
     Indication: GASTRITIS PROPHYLAXIS
     Dosage: 100 mg, UNK
     Route: 048
     Dates: start: 20050709
  15. RESCULA [Concomitant]
     Indication: NORMAL TENSION GLAUCOMA
     Dosage: UNK
     Dates: start: 20051004
  16. KREMEZIN [Concomitant]
     Indication: RENAL FAILURE CHRONIC
     Dosage: 6 g, UNK
     Route: 048
     Dates: start: 20101109
  17. KAYEXALATE [Concomitant]
     Indication: RENAL FAILURE CHRONIC
     Dosage: 10 g, BID
     Route: 048
     Dates: start: 20101124, end: 20110829
  18. SALOBEL [Concomitant]
     Indication: HYPERURICAEMIA
     Dosage: 100 mg, UNK
     Route: 048
     Dates: start: 20110413

REACTIONS (2)
  - Sudden cardiac death [Fatal]
  - Condition aggravated [Recovered/Resolved]
